FAERS Safety Report 18621921 (Version 1)
Quarter: 2020Q4

REPORT INFORMATION
  Report Type: Spontaneous
  Country: US (occurrence: US)
  Receive Date: 20201216
  Receipt Date: 20201216
  Transmission Date: 20210114
  Serious: Yes (Other)
  Sender: FDA-Public Use
  Company Number: US-BION-009299

PATIENT
  Age: 75 Year
  Sex: Female

DRUGS (2)
  1. ACETYLSALICYLIC ACID [Concomitant]
     Active Substance: ASPIRIN
  2. ALEVE [Suspect]
     Active Substance: NAPROXEN SODIUM
     Indication: PAIN
     Route: 048
     Dates: start: 202011

REACTIONS (3)
  - Choking [Unknown]
  - Product use complaint [Unknown]
  - Foreign body in throat [Unknown]

NARRATIVE: CASE EVENT DATE: 202011
